FAERS Safety Report 12853773 (Version 1)
Quarter: 2016Q4

REPORT INFORMATION
  Report Type: Spontaneous
  Country: DE (occurrence: DE)
  Receive Date: 20161017
  Receipt Date: 20161017
  Transmission Date: 20170207
  Serious: Yes (Hospitalization)
  Sender: FDA-Public Use
  Company Number: DE-009507513-1610DEU003294

PATIENT
  Age: 81 Year
  Sex: Male
  Weight: 81 kg

DRUGS (8)
  1. ASPIRIN. [Concomitant]
     Active Substance: ASPIRIN
     Indication: CAROTID ARTERY STENOSIS
     Dosage: DAILY DOSE: 100 MG EVERY DAY
     Route: 048
     Dates: start: 200503
  2. SIMVASTATIN. [Suspect]
     Active Substance: SIMVASTATIN
     Indication: CAROTID ARTERY STENOSIS
     Dosage: 80 MG, QD
     Route: 048
     Dates: start: 201503
  3. BISOPROLOL [Concomitant]
     Active Substance: BISOPROLOL
     Indication: TACHYCARDIA
     Dosage: DAILY DOSE: 5 MG EVERY DAY
     Route: 048
     Dates: start: 201301
  4. ALLOPURINOL. [Concomitant]
     Active Substance: ALLOPURINOL
     Indication: HYPERURICAEMIA
     Dosage: DAILY DOSE: 100 MG EVERY DAY
     Route: 048
     Dates: start: 201503
  5. SIMVASTATIN. [Suspect]
     Active Substance: SIMVASTATIN
     Dosage: 40 MG, QD
     Route: 048
     Dates: start: 201301, end: 201502
  6. ENALAPRIL MALEATE. [Concomitant]
     Active Substance: ENALAPRIL MALEATE
     Indication: HYPERTENSION
     Dosage: DAILY DOSE: 10 MG EVERY DAY
     Route: 048
     Dates: start: 201301
  7. TOREM [Concomitant]
     Active Substance: TORSEMIDE
     Indication: HYPERTENSION
     Dosage: DAILY DOSE: 5 MG EVERY DAY
     Route: 048
     Dates: start: 201301
  8. NOVAMINSULFON [Concomitant]
     Active Substance: METAMIZOLE
     Indication: CAROTID ARTERY STENOSIS
     Dosage: DAILY DOSE: 2000 MG EVERY DAY
     Route: 048
     Dates: start: 2015

REACTIONS (2)
  - Renal failure [Recovering/Resolving]
  - Rhabdomyolysis [Recovering/Resolving]

NARRATIVE: CASE EVENT DATE: 20160818
